FAERS Safety Report 8850256 (Version 1)
Quarter: 2012Q4

REPORT INFORMATION
  Report Type: 
  Country: US (occurrence: US)
  Receive Date: 20121019
  Receipt Date: 20121019
  Transmission Date: 20130627
  Serious: Yes (Hospitalization, Other)
  Sender: FDA-Public Use
  Company Number: PHHY2012US090989

PATIENT
  Age: 57 Year
  Sex: Male

DRUGS (3)
  1. GLYBURIDE [Suspect]
  2. PARACETAMOL SANDOZ [Suspect]
  3. ACETYLSALICYLIC ACID [Suspect]

REACTIONS (9)
  - International normalised ratio increased [Unknown]
  - Hypoglycaemia [Recovered/Resolved]
  - Coma scale abnormal [Unknown]
  - Drug level increased [Unknown]
  - Aspartate aminotransferase increased [Unknown]
  - Overdose [Unknown]
  - Overdose [None]
  - Unresponsive to stimuli [None]
  - Toxicity to various agents [None]
